FAERS Safety Report 4626591-3 (Version None)
Quarter: 2005Q1

REPORT INFORMATION
  Report Type: 
  Country: None (occurrence: None)
  Receive Date: 20050330
  Receipt Date: 20050317
  Transmission Date: 20050727
  Serious: Yes (Hospitalization)
  Sender: FDA-Public Use
  Company Number: 2005046211

PATIENT
  Sex: Male
  Weight: 89.8122 kg

DRUGS (1)
  1. NASALCROM [Suspect]
     Indication: HYPERSENSITIVITY
     Dosage: NASAL
     Route: 045
     Dates: end: 20041203

REACTIONS (1)
  - INCOHERENT [None]
